FAERS Safety Report 7971749-9 (Version None)
Quarter: 2011Q4

REPORT INFORMATION
  Report Type: 
  Country: None (occurrence: None)
  Receive Date: 20111212
  Receipt Date: 20111129
  Transmission Date: 20120403
  Serious: Yes (Other)
  Sender: FDA-Public Use
  Company Number: NL-MYLANLABS-2011S1024595

PATIENT
  Age: 59 Year
  Sex: Male
  Weight: 73 kg

DRUGS (4)
  1. CARBASALATE CALCIUM [Concomitant]
     Indication: PRODUCT USED FOR UNKNOWN INDICATION
     Route: 048
     Dates: start: 20110615
  2. PRAVASTATIN [Suspect]
     Indication: HYPERCHOLESTEROLAEMIA
     Dosage: 1 X DAAGS 40 MG
     Route: 048
     Dates: start: 20110615, end: 20111111
  3. CLOPIDOGREL [Concomitant]
     Indication: PRODUCT USED FOR UNKNOWN INDICATION
     Route: 048
     Dates: start: 20110615
  4. PANTOPRAZOLE [Concomitant]
     Indication: PRODUCT USED FOR UNKNOWN INDICATION
     Route: 048
     Dates: start: 20110615

REACTIONS (3)
  - MEMORY IMPAIRMENT [None]
  - MUSCLE RIGIDITY [None]
  - LOSS OF CONSCIOUSNESS [None]
